FAERS Safety Report 4522362-7 (Version None)
Quarter: 2004Q4

REPORT INFORMATION
  Report Type: 
  Country: None (occurrence: None)
  Receive Date: 20041209
  Receipt Date: 20041125
  Transmission Date: 20050328
  Serious: Yes (Other)
  Sender: FDA-Public Use
  Company Number: FR-GLAXOSMITHKLINE-B0358121A

PATIENT
  Age: 21 Year
  Sex: Female

DRUGS (7)
  1. SERETIDE [Suspect]
     Indication: ASTHMA
     Dosage: 1PUFF TWICE PER DAY
     Route: 055
     Dates: end: 20041022
  2. FLIXONASE [Suspect]
     Dosage: 1PUFF PER DAY
     Route: 045
     Dates: end: 20041022
  3. BRONCHODUAL [Suspect]
     Indication: ASTHMA
     Dosage: 1UNIT THREE TIMES PER DAY
     Route: 055
     Dates: end: 20041022
  4. TELFAST [Suspect]
     Indication: ASTHMA
     Route: 048
     Dates: end: 20041022
  5. AERIUS [Suspect]
     Indication: ASTHMA
     Route: 048
  6. ZADITEN [Suspect]
     Indication: ASTHMA
     Dosage: 2MG PER DAY
     Route: 048
     Dates: end: 20041022
  7. CONTRACEPTIVE PILL [Concomitant]
     Route: 048
     Dates: end: 20041022

REACTIONS (1)
  - DRUG EXPOSURE DURING PREGNANCY [None]
